FAERS Safety Report 6171070-8 (Version None)
Quarter: 2009Q2

REPORT INFORMATION
  Report Type: 
  Country: None (occurrence: None)
  Receive Date: 20090427
  Receipt Date: 20090414
  Transmission Date: 20091009
  Serious: Yes (Hospitalization, Other)
  Sender: FDA-Public Use
  Company Number: 2009AL002284

PATIENT
  Age: 48 Year

DRUGS (13)
  1. RAMIPRIL [Suspect]
  2. DIDANOSINE [Concomitant]
  3. ASPIRIN [Concomitant]
  4. STAVUDINE [Concomitant]
  5. KALETRA [Concomitant]
  6. TENOFOVIR [Concomitant]
  7. EFAVIRENZ [Concomitant]
  8. ZIDOVUDINE [Concomitant]
  9. LAMIVUDINE [Concomitant]
  10. NELFINAVIR [Concomitant]
  11. ATORVASTATIN [Concomitant]
  12. PRAVASTATIN [Concomitant]
  13. LOVAZA [Concomitant]

REACTIONS (4)
  - BLOOD CHOLESTEROL INCREASED [None]
  - BLOOD TRIGLYCERIDES INCREASED [None]
  - MYOCARDIAL INFARCTION [None]
  - VIROLOGIC FAILURE [None]
